FAERS Safety Report 8196930-8 (Version None)
Quarter: 2012Q1

REPORT INFORMATION
  Report Type: 
  Country: None (occurrence: None)
  Receive Date: 20120309
  Receipt Date: 20120306
  Transmission Date: 20120608
  Serious: Yes (Death)
  Sender: FDA-Public Use
  Company Number: JP-SANOFI-AVENTIS-2012SA008370

PATIENT
  Age: 60 Year
  Sex: Female
  Weight: 83 kg

DRUGS (11)
  1. PREDNISOLONE [Concomitant]
     Route: 042
     Dates: start: 20110922, end: 20110925
  2. RASBURICASE [Suspect]
     Route: 042
     Dates: start: 20110923, end: 20110924
  3. MAXIPIME [Concomitant]
     Route: 042
     Dates: start: 20110924, end: 20110925
  4. CATABON [Concomitant]
     Route: 042
     Dates: start: 20110924, end: 20110925
  5. HANP [Concomitant]
     Route: 042
     Dates: start: 20110924, end: 20110925
  6. STRONG NEO-MINOPHAGEN C [Concomitant]
     Route: 042
     Dates: start: 20110913, end: 20110925
  7. LASIX [Concomitant]
     Route: 042
     Dates: start: 20110418, end: 20110924
  8. FAMOTIDINE [Concomitant]
     Route: 042
     Dates: start: 20110913, end: 20110925
  9. ALBUMIN (HUMAN) [Concomitant]
     Route: 042
     Dates: start: 20110922, end: 20110924
  10. RASBURICASE [Suspect]
     Route: 042
     Dates: start: 20110923, end: 20110924
  11. SOLU-MEDROL [Concomitant]
     Route: 042
     Dates: start: 20110924, end: 20110924

REACTIONS (1)
  - DEATH [None]
